FAERS Safety Report 7522056-X (Version None)
Quarter: 2011Q2

REPORT INFORMATION
  Report Type: 
  Country: None (occurrence: None)
  Receive Date: 20110603
  Receipt Date: 20110526
  Transmission Date: 20111010
  Serious: Yes (Other)
  Sender: FDA-Public Use
  Company Number: US-SANOFI-AVENTIS-2011SA000715

PATIENT
  Age: 49 Year
  Sex: Female

DRUGS (3)
  1. ZOLPIDEM TARTRATE [Suspect]
     Route: 048
  2. ANALGESICS [Concomitant]
  3. MUSCLE RELAXANTS [Concomitant]

REACTIONS (6)
  - IMPAIRED DRIVING ABILITY [None]
  - ROAD TRAFFIC ACCIDENT [None]
  - DISTURBANCE IN ATTENTION [None]
  - LETHARGY [None]
  - SOMNAMBULISM [None]
  - MEMORY IMPAIRMENT [None]
